FAERS Safety Report 10481735 (Version 1)
Quarter: 2014Q3

REPORT INFORMATION
  Report Type: Spontaneous
  Country: US (occurrence: None)
  Receive Date: 20140908
  Receipt Date: 20140908
  Transmission Date: 20150326
  Serious: Yes (Hospitalization)
  Sender: FDA-Public Use
  Company Number: 396057

PATIENT
  Sex: Female
  Weight: 98.9 kg

DRUGS (8)
  1. HCTZ(HYDROCHLOROTHIAZIDE) [Concomitant]
  2. VICTOZA [Suspect]
     Active Substance: LIRAGLUTIDE
     Indication: DIABETES MELLITUS INADEQUATE CONTROL
     Route: 058
     Dates: start: 2012, end: 20140111
  3. ENALAPRIL(ENALAPRIL) [Concomitant]
  4. METFORMIN [Concomitant]
     Active Substance: METFORMIN HYDROCHLORIDE
  5. ZOCOR(SIMVASTATIN) [Concomitant]
  6. LANTUS [Concomitant]
     Active Substance: INSULIN GLARGINE
  7. PROTONIX(PANTOPRAZOLE SODIUM SESQUIHYDRATE) [Concomitant]
  8. SIMVASTATIN. [Concomitant]
     Active Substance: SIMVASTATIN

REACTIONS (2)
  - Lymphadenopathy [None]
  - Pancreatitis [None]

NARRATIVE: CASE EVENT DATE: 201312
